FAERS Safety Report 14425794 (Version 1)
Quarter: 2018Q1

REPORT INFORMATION
  Report Type: Spontaneous
  Country: US (occurrence: US)
  Receive Date: 20180122
  Receipt Date: 20180122
  Transmission Date: 20180509
  Serious: Yes (Disabling, Other)
  Sender: FDA-Public Use
  Company Number: None

PATIENT
  Age: 39 Year
  Sex: Female
  Weight: 108 kg

DRUGS (3)
  1. DEXTROAMPHET SACCHARAT, AMPHET ASPARTATE, DEXTROAMPHET SULFATE AND AMPHET SULFAT [Suspect]
     Active Substance: AMPHETAMINE ASPARTATE\AMPHETAMINE SULFATE\DEXTROAMPHETAMINE SACCHARATE\DEXTROAMPHETAMINE SULFATE
     Indication: ATTENTION DEFICIT/HYPERACTIVITY DISORDER
     Dosage: ?          QUANTITY:90 TABLET(S);?
     Route: 048
     Dates: start: 20180109, end: 20180122
  2. CYMBALTA [Concomitant]
     Active Substance: DULOXETINE HYDROCHLORIDE
  3. VITAMIN B12 [Concomitant]
     Active Substance: CYANOCOBALAMIN

REACTIONS (14)
  - Headache [None]
  - Mood altered [None]
  - Crying [None]
  - Hypersomnia [None]
  - Increased appetite [None]
  - Weight increased [None]
  - Disturbance in attention [None]
  - Drug screen negative [None]
  - Pain [None]
  - Menstrual disorder [None]
  - Breast tenderness [None]
  - Impaired work ability [None]
  - Product taste abnormal [None]
  - Product substitution issue [None]

NARRATIVE: CASE EVENT DATE: 20180109
